FAERS Safety Report 4477370-1 (Version None)
Quarter: 2004Q4

REPORT INFORMATION
  Report Type: 
  Country: None (occurrence: None)
  Receive Date: 20041013
  Receipt Date: 20040927
  Transmission Date: 20050328
  Serious: Yes (Hospitalization)
  Sender: FDA-Public Use
  Company Number: DSA_24989_2004

PATIENT
  Age: 82 Year
  Sex: Female
  Weight: 55 kg

DRUGS (12)
  1. RENIVACE [Suspect]
     Indication: CARDIAC FAILURE
     Dosage: 2.5 MG QD PO
     Route: 048
     Dates: start: 20040617, end: 20040626
  2. RHYTHMY [Concomitant]
  3. AMLDODIN [Concomitant]
  4. GASTER [Concomitant]
  5. MUCOSTA [Concomitant]
  6. CARVEDILOL [Concomitant]
  7. ISOSORBIDE MONONITRATE [Concomitant]
  8. BUFFERIN [Concomitant]
  9. PREDONINE [Concomitant]
  10. ARGAMATE [Concomitant]
  11. BACTRIM [Concomitant]
  12. MICARDIS [Concomitant]

REACTIONS (7)
  - BLOOD CHLORIDE INCREASED [None]
  - BLOOD LACTATE DEHYDROGENASE INCREASED [None]
  - BLOOD POTASSIUM INCREASED [None]
  - BLOOD SODIUM ABNORMAL [None]
  - FIBRIN DEGRADATION PRODUCTS INCREASED [None]
  - PANCYTOPENIA [None]
  - PROTHROMBIN TIME SHORTENED [None]
